FAERS Safety Report 7201854-6 (Version None)
Quarter: 2010Q4

REPORT INFORMATION
  Report Type: 
  Country: None (occurrence: None)
  Receive Date: 20101215
  Receipt Date: 20101130
  Transmission Date: 20110411
  Serious: Yes (Hospitalization, Other)
  Sender: FDA-Public Use
  Company Number: JPI-P-013122

PATIENT
  Age: 36 Year
  Sex: Female
  Weight: 68.0396 kg

DRUGS (8)
  1. XYREM [Suspect]
     Indication: NARCOLEPSY
     Dosage: SEE IMAGE
     Route: 048
     Dates: start: 20100201, end: 20100101
  2. XYREM [Suspect]
     Indication: NARCOLEPSY
     Dosage: SEE IMAGE
     Route: 048
     Dates: start: 20100201, end: 20100201
  3. XYREM [Suspect]
     Indication: NARCOLEPSY
     Dosage: SEE IMAGE
     Route: 048
     Dates: start: 20100101
  4. PREDNISONE [Suspect]
     Indication: SARCOIDOSIS
     Dates: start: 20101001, end: 20101001
  5. VENLAFAXINE HYDROCHLORIDE [Concomitant]
  6. FLUOXETINE HCL [Suspect]
  7. ETONOGESTREL [Concomitant]
  8. DEXTROAMPHETAMINE AND AMPHETAMINE [Concomitant]

REACTIONS (11)
  - ANTIPHOSPHOLIPID SYNDROME [None]
  - BACK PAIN [None]
  - DEHYDRATION [None]
  - DIZZINESS [None]
  - HEART RATE INCREASED [None]
  - NAUSEA [None]
  - PARANOIA [None]
  - PULMONARY EMBOLISM [None]
  - SARCOIDOSIS [None]
  - SJOGREN'S SYNDROME [None]
  - TREMOR [None]
